FAERS Safety Report 8961516 (Version 2)
Quarter: 2012Q4

REPORT INFORMATION
  Report Type: 
  Country: US (occurrence: US)
  Receive Date: 20121213
  Receipt Date: 20121226
  Transmission Date: 20130627
  Serious: Yes (Hospitalization, Other)
  Sender: FDA-Public Use
  Company Number: US-BAYER-2012-129846

PATIENT
  Age: 38 Year
  Sex: Female
  Weight: 61.68 kg

DRUGS (14)
  1. YASMIN [Suspect]
  2. OCELLA [Suspect]
     Indication: MENSTRUAL CYCLE MANAGEMENT
     Dosage: UNK
     Dates: start: 2008, end: 20081029
  3. OCELLA [Suspect]
     Indication: MENSTRUAL CYCLE MANAGEMENT
     Dosage: UNK
     Dates: start: 20090526
  4. OCELLA [Suspect]
     Indication: MENSTRUAL CYCLE MANAGEMENT
     Dosage: UNK
     Dates: start: 20100107, end: 20100902
  5. OCELLA [Suspect]
     Indication: MENSTRUAL CYCLE MANAGEMENT
     Dosage: UNK
     Dates: start: 20110114, end: 20110908
  6. KEPPRA [Concomitant]
     Dosage: 1000 mg, UNK
     Route: 048
  7. FLUOXETINE [Concomitant]
     Dosage: 80 mg, DAILY
     Route: 048
  8. FLEXERIL [Concomitant]
     Indication: PAIN
     Dosage: 5 mg, HS
     Route: 048
  9. BUSPIRONE [Concomitant]
     Dosage: 15 mg, UNK
     Route: 048
  10. PROZAC [Concomitant]
  11. HYDROCORTISON [HYDROCORTISONE] [Concomitant]
  12. TOPROL [Concomitant]
  13. NITROGLYCERIN [Concomitant]
     Route: 060
  14. ZOCOR [Concomitant]

REACTIONS (4)
  - Myocardial infarction [None]
  - Off label use [None]
  - Peroneal nerve palsy [None]
  - Thrombosis [None]
